FAERS Safety Report 7916012-7 (Version None)
Quarter: 2011Q4

REPORT INFORMATION
  Report Type: 
  Country: None (occurrence: None)
  Receive Date: 20111115
  Receipt Date: 20111107
  Transmission Date: 20120403
  Serious: Yes (Hospitalization)
  Sender: FDA-Public Use
  Company Number: CA-ASTRAZENECA-2011SE67418

PATIENT
  Age: 33 Year
  Sex: Male

DRUGS (9)
  1. MERCAPTOPURINE [Concomitant]
     Route: 065
  2. METHADONE HCL [Concomitant]
     Route: 065
  3. PENTOXIFYLLINE [Concomitant]
     Route: 065
  4. CESAMET [Concomitant]
     Route: 065
  5. REMICADE [Suspect]
     Dosage: 400 MG ONE EVERY SIX WEEKS
     Route: 065
  6. IRON [Concomitant]
     Route: 065
  7. SEROQUEL [Suspect]
     Route: 048
  8. PANTOPRAZOLE SODIUM [Concomitant]
     Route: 065
  9. REMICADE [Suspect]
     Dosage: 400 MG ONE EVERY SIX WEEKS
     Route: 042

REACTIONS (1)
  - THROMBOSIS [None]
